FAERS Safety Report 9587627 (Version 1)
Quarter: 2013Q4

REPORT INFORMATION
  Report Type: Spontaneous
  Country: US (occurrence: US)
  Receive Date: 20131003
  Receipt Date: 20131003
  Transmission Date: 20140711
  Serious: Yes (Hospitalization, Other)
  Sender: FDA-Public Use
  Company Number: US-PFIZER INC-2013282384

PATIENT
  Sex: Female

DRUGS (4)
  1. ZOLOFT [Suspect]
     Dosage: UNK
     Dates: start: 201307, end: 2013
  2. GEODON [Suspect]
     Dosage: UNK
     Dates: end: 201307
  3. LATUDA [Suspect]
     Indication: DISSOCIATIVE IDENTITY DISORDER
     Dosage: UNK
     Dates: start: 2013, end: 201307
  4. LATUDA [Suspect]
     Indication: DEPRESSIVE SYMPTOM

REACTIONS (1)
  - Serotonin syndrome [Unknown]
